FAERS Safety Report 7013969-6 (Version None)
Quarter: 2010Q3

REPORT INFORMATION
  Report Type: 
  Country: None (occurrence: None)
  Receive Date: 20100925
  Receipt Date: 20100916
  Transmission Date: 20110219
  Serious: Yes (Other)
  Sender: FDA-Public Use
  Company Number: US-AMGEN-KDL438685

PATIENT
  Sex: Female

DRUGS (12)
  1. PROLIA [Suspect]
     Indication: OSTEOPOROSIS POSTMENOPAUSAL
     Dates: start: 20100909
  2. BENICAR [Concomitant]
  3. ZOCOR [Concomitant]
  4. ATENOLOL [Concomitant]
  5. OXYBUTYNIN [Concomitant]
  6. FENOFIBRATE [Concomitant]
  7. AMLODIPINE [Concomitant]
  8. ASPIRIN [Concomitant]
  9. CALCIUM/VITAMIN D [Concomitant]
  10. OSTEOBIFLEX [Concomitant]
  11. VITAMIN B-12 [Concomitant]
  12. CENTRUM SILVER [Concomitant]

REACTIONS (4)
  - ABDOMINAL PAIN [None]
  - BACK PAIN [None]
  - FATIGUE [None]
  - VOMITING [None]
